FAERS Safety Report 8590356-0 (Version None)
Quarter: 2012Q3

REPORT INFORMATION
  Report Type: 
  Country: None (occurrence: None)
  Receive Date: 20120813
  Receipt Date: 20120808
  Transmission Date: 20120928
  Serious: Yes (Hospitalization)
  Sender: FDA-Public Use
  Company Number: FR-PFIZER INC-2012192783

PATIENT
  Age: 55 Year
  Sex: Male

DRUGS (2)
  1. EFFEXOR [Suspect]
     Indication: DEPRESSION
     Dosage: UNK
     Route: 048
  2. OXAZEPAM [Concomitant]
     Dosage: UNK

REACTIONS (5)
  - TONGUE BITING [None]
  - SUICIDE ATTEMPT [None]
  - EPILEPSY [None]
  - MALAISE [None]
  - GRAND MAL CONVULSION [None]
